FAERS Safety Report 7760176-5 (Version None)
Quarter: 2011Q3

REPORT INFORMATION
  Report Type: 
  Country: None (occurrence: None)
  Receive Date: 20110919
  Receipt Date: 20110908
  Transmission Date: 20111222
  Serious: Yes (Other)
  Sender: FDA-Public Use
  Company Number: DE-TEVA-297829GER

PATIENT
  Sex: Female

DRUGS (2)
  1. NITROFURANTOIN-RATIOPHARM [Suspect]
     Indication: URINARY TRACT INFLAMMATION
  2. EVALUNA [Concomitant]
     Indication: CONTRACEPTION
     Dates: start: 20110301, end: 20110701

REACTIONS (1)
  - ABORTION SPONTANEOUS [None]
